FAERS Safety Report 6994093-5 (Version None)
Quarter: 2010Q3

REPORT INFORMATION
  Report Type: 
  Country: None (occurrence: None)
  Receive Date: 20100917
  Receipt Date: 20100713
  Transmission Date: 20110219
  Serious: No
  Sender: FDA-Public Use
  Company Number: US-ASTRAZENECA-2010SE33959

PATIENT
  Age: 13504 Day
  Sex: Female

DRUGS (8)
  1. SEROQUEL [Suspect]
     Route: 048
     Dates: start: 20060831
  2. NEURONTIN [Concomitant]
     Dates: start: 20060831
  3. CELEXA [Concomitant]
     Dates: start: 20060831
  4. NEXIUM [Concomitant]
     Dates: start: 20060831
  5. ADDERALL 10 [Concomitant]
     Dates: start: 20060831
  6. SYNTHROID [Concomitant]
     Dosage: INCREASED TO 50MCG
     Dates: start: 20070409
  7. ATENOLOL [Concomitant]
     Dates: start: 20061018
  8. PROTONIX [Concomitant]
     Dates: start: 20061018

REACTIONS (4)
  - ASTHMA [None]
  - EAR PAIN [None]
  - LYMPHOID TISSUE HYPERPLASIA [None]
  - OROPHARYNGEAL PAIN [None]
